FAERS Safety Report 12044945 (Version 1)
Quarter: 2016Q1

REPORT INFORMATION
  Report Type: Spontaneous
  Country: US (occurrence: US)
  Receive Date: 20160208
  Receipt Date: 20160208
  Transmission Date: 20160526
  Serious: Yes (Other)
  Sender: FDA-Public Use
  Company Number: US-BAYER-2016-018617

PATIENT
  Age: 58 Year
  Sex: Female

DRUGS (5)
  1. SOMA [Concomitant]
     Active Substance: CARISOPRODOL
     Dosage: 350 MG, QID
     Route: 048
  2. LYRICA [Suspect]
     Active Substance: PREGABALIN
     Dosage: UNK, TID
     Dates: end: 20160115
  3. BAYER GENUINE ASPIRIN [Suspect]
     Active Substance: ASPIRIN
     Dosage: UNK
     Route: 048
     Dates: start: 201512
  4. ACETAMINOPHEN. [Concomitant]
     Active Substance: ACETAMINOPHEN
     Dosage: UNK UNK, TID
  5. BUTALBITAL [Concomitant]
     Active Substance: BUTALBITAL
     Dosage: UNK UNK, TID
     Route: 048

REACTIONS (8)
  - Upper-airway cough syndrome [Not Recovered/Not Resolved]
  - Laryngitis [Not Recovered/Not Resolved]
  - Fibromyalgia [Not Recovered/Not Resolved]
  - Loss of consciousness [Recovered/Resolved]
  - Nasopharyngitis [Not Recovered/Not Resolved]
  - Pain [Not Recovered/Not Resolved]
  - Coronary artery occlusion [None]
  - Therapeutic response unexpected [None]

NARRATIVE: CASE EVENT DATE: 201512
